FAERS Safety Report 16118361 (Version 1)
Quarter: 2019Q1

REPORT INFORMATION
  Report Type: Spontaneous
  Country: US (occurrence: US)
  Receive Date: 20190326
  Receipt Date: 20190326
  Transmission Date: 20190418
  Serious: No
  Sender: FDA-Public Use
  Company Number: US-EX USA HOLDINGS-EXHL20192189

PATIENT
  Age: 16 Month
  Sex: Male

DRUGS (1)
  1. ESTARYLLA [Suspect]
     Active Substance: ETHINYL ESTRADIOL\NORGESTIMATE
     Indication: EXPOSURE VIA BREAST MILK
     Dosage: UNKNOWN
     Route: 063

REACTIONS (2)
  - Exposure via breast milk [None]
  - Dyskinesia [Unknown]
